FAERS Safety Report 5113858-8 (Version None)
Quarter: 2006Q3

REPORT INFORMATION
  Report Type: 
  Country: None (occurrence: None)
  Receive Date: 20060921
  Receipt Date: 20060906
  Transmission Date: 20061208
  Serious: Yes (Other)
  Sender: FDA-Public Use
  Company Number: 2006111416

PATIENT
  Sex: Female

DRUGS (3)
  1. CELEBREX [Suspect]
     Dates: start: 20000101, end: 20040101
  2. BEXTRA [Suspect]
     Dates: start: 20000101, end: 20040101
  3. VIOXX [Suspect]
     Dates: start: 19990101, end: 20020101

REACTIONS (1)
  - CEREBRAL INFARCTION [None]
